FAERS Safety Report 9717233 (Version 1)
Quarter: 2013Q4

REPORT INFORMATION
  Report Type: Spontaneous
  Country: US (occurrence: US)
  Receive Date: 20131127
  Receipt Date: 20131127
  Transmission Date: 20140711
  Serious: Yes (Other)
  Sender: FDA-Public Use
  Company Number: US-PFIZER INC-2013334552

PATIENT
  Age: 63 Year
  Sex: Female
  Weight: 72.6 kg

DRUGS (2)
  1. ADVIL [Suspect]
     Indication: POLYMYALGIA RHEUMATICA
     Dosage: 600 MG, 2X/DAY
     Route: 048
     Dates: start: 201311
  2. LITHIUM CARBONATE [Suspect]
     Indication: BIPOLAR DISORDER
     Dosage: UNK

REACTIONS (3)
  - Hypertension [Unknown]
  - Intentional drug misuse [Unknown]
  - Thyroid disorder [Unknown]
